FAERS Safety Report 8308901-9 (Version None)
Quarter: 2012Q2

REPORT INFORMATION
  Report Type: 
  Country: None (occurrence: None)
  Receive Date: 20120424
  Receipt Date: 20120419
  Transmission Date: 20120825
  Serious: Yes (Death, Hospitalization, Other)
  Sender: FDA-Public Use
  Company Number: US-BAYER-200940312NA

PATIENT
  Age: 2 Week
  Sex: Female
  Weight: 3.4 kg

DRUGS (30)
  1. FUROSEMIDE [Concomitant]
     Dosage: UNK
     Dates: start: 20031101
  2. ZANTAC [Concomitant]
     Dosage: UNK
     Dates: start: 20031101
  3. RED BLOOD CELLS [Concomitant]
     Dosage: 40 ML, UNK
     Dates: start: 20031201, end: 20031201
  4. PLATELETS [Concomitant]
     Dosage: 5 ML, UNK
     Dates: start: 20031201, end: 20031201
  5. ACYCLOVIR [Concomitant]
  6. TRASYLOL [Suspect]
     Indication: CARDIOPULMONARY BYPASS
     Dosage: 18 ML, ONCE
     Route: 042
     Dates: start: 20031201, end: 20031201
  7. VECURONIUM BROMIDE [Concomitant]
     Dosage: 2.5 MG, UNK
     Route: 042
     Dates: start: 20031201, end: 20031201
  8. CALCIUM [Concomitant]
     Dosage: 20.7542 MCG
     Route: 042
     Dates: start: 20031201, end: 20031201
  9. TRASYLOL [Suspect]
     Indication: NORWOOD PROCEDURE
     Dosage: 161.875 M-UNITS, UNK
     Route: 042
     Dates: start: 20031201, end: 20031201
  10. TRASYLOL [Suspect]
     Indication: AORTIC ANASTOMOSIS
  11. ALPROSTADIL [Concomitant]
     Dosage: 6.848 MCG, UNK
     Route: 042
     Dates: start: 20031201, end: 20031201
  12. BLOOD AND RELATED PRODUCTS [Concomitant]
     Dosage: 60 ML, UNK
     Dates: start: 20031201, end: 20031201
  13. PLASMA [Concomitant]
     Dosage: UNK
     Dates: start: 20031201
  14. MIDAZOLAM [Concomitant]
     Dosage: 100 MCG/KG/HR
     Route: 042
  15. DOPAMINE HCL [Concomitant]
     Dosage: 9 MCG/KG/MIN, UNK
     Dates: start: 20031101
  16. FENTANYL [Concomitant]
     Dosage: 3 MCG/KG/HR (200 MCG), UNK
     Route: 042
     Dates: start: 20031201, end: 20031201
  17. PROTAMINE SULFATE [Concomitant]
     Dosage: 20 MG, UNK
     Route: 042
     Dates: start: 20031201, end: 20031201
  18. SODIUM BICARBONATE [Concomitant]
     Dosage: 3 MCG, UNK
     Route: 042
     Dates: start: 20031201, end: 20031201
  19. AMPICILLIN [Concomitant]
     Dosage: UNK
     Dates: start: 20031101
  20. CEFOTAXIME [Concomitant]
     Dosage: UNK
     Dates: start: 20031101
  21. CEFAZOLIN [Concomitant]
     Dosage: 160 MG, UNK
     Route: 042
  22. DOBUTAMINE HCL [Concomitant]
     Dosage: 1.071 MG, UNK
     Route: 042
  23. DOPAMINE HCL [Concomitant]
     Dosage: 6.3652 MG, UNK
     Route: 042
     Dates: start: 20031201, end: 20031201
  24. MILRINONE [Concomitant]
     Dosage: 0.2 MCG/KG/HR
     Route: 042
  25. HYDROCORTISONE [Concomitant]
     Dosage: 70 MG, UNK
     Route: 042
     Dates: start: 20031201, end: 20031201
  26. EPINEPHRINE [Concomitant]
     Dosage: 2.397 MCG
     Route: 042
  27. CALCIUM [Concomitant]
     Dosage: 20.7642 MG, UNK
     Route: 042
     Dates: start: 20031201, end: 20031201
  28. CRYOPRECIPITATES [Concomitant]
     Dosage: 15 ML, UNK
     Dates: start: 20031201, end: 20031201
  29. GENTAMICIN [Concomitant]
     Dosage: UNK
     Route: 042
     Dates: start: 20031117
  30. NORCURON [Concomitant]

REACTIONS (13)
  - FEAR [None]
  - INJURY [None]
  - RENAL FAILURE [None]
  - RENAL INJURY [None]
  - PAIN [None]
  - RENAL IMPAIRMENT [None]
  - STRESS [None]
  - ANXIETY [None]
  - UNEVALUABLE EVENT [None]
  - DEATH [None]
  - EMOTIONAL DISTRESS [None]
  - ANHEDONIA [None]
  - MULTI-ORGAN FAILURE [None]
